FAERS Safety Report 18220811 (Version 2)
Quarter: 2020Q4

REPORT INFORMATION
  Report Type: Spontaneous
  Country: DE (occurrence: DE)
  Receive Date: 20200902
  Receipt Date: 20201218
  Transmission Date: 20210113
  Serious: Yes (Other)
  Sender: FDA-Public Use
  Company Number: DE-AUROBINDO-AUR-APL-2020-045378

PATIENT
  Age: 27 Year
  Sex: Male
  Weight: 77 kg

DRUGS (4)
  1. MIRTAZAPINE PUREN 30 MG FILM-COATED TABLETS [Suspect]
     Active Substance: MIRTAZAPINE
     Indication: PRODUCT USED FOR UNKNOWN INDICATION
     Dosage: 10 DOSAGE FORM,1 TOTAL, 10 TABLET / N (MAXIMUM)
     Route: 048
  2. MIRTAZAPIN HEUMANN [Suspect]
     Active Substance: MIRTAZAPINE
     Indication: PRODUCT USED FOR UNKNOWN INDICATION
     Dosage: 5 DOSAGE FORM,1 TOTAL, 5 TABLET / N (MAXIMUM)
     Route: 048
  3. CITALOPRAM BETA [Suspect]
     Active Substance: CITALOPRAM HYDROCHLORIDE
     Indication: PRODUCT USED FOR UNKNOWN INDICATION
     Dosage: 40 DOSAGE FORM,1 TOTAL,40 TABLET / N (MAXIMUM)
     Route: 048
  4. GABAPENTIN. [Suspect]
     Active Substance: GABAPENTIN
     Indication: PRODUCT USED FOR UNKNOWN INDICATION
     Dosage: 20 DOSAGE FORM,1 TOTAL, 20 TABLET / N (MAXIMUM)
     Route: 048

REACTIONS (5)
  - Sopor [Unknown]
  - Somnolence [Unknown]
  - Intentional overdose [Unknown]
  - Sinus bradycardia [Unknown]
  - Hypotension [Unknown]
